FAERS Safety Report 11102397 (Version 1)
Quarter: 2015Q2

REPORT INFORMATION
  Report Type: Spontaneous
  Country: AU (occurrence: AU)
  Receive Date: 20150511
  Receipt Date: 20150511
  Transmission Date: 20150821
  Serious: Yes (Hospitalization, Other)
  Sender: FDA-Public Use
  Company Number: AU-JNJFOC-20150421351

PATIENT

DRUGS (2)
  1. EVITHROM [Suspect]
     Active Substance: THROMBIN HUMAN
     Indication: HAEMOSTASIS
     Route: 061
     Dates: start: 20150325, end: 20150325
  2. LOCAL HAEMOSTATICS [Concomitant]
     Active Substance: UNSPECIFIED INGREDIENT
     Indication: HAEMOSTASIS
     Route: 061
     Dates: start: 20150325, end: 20150325

REACTIONS (5)
  - Drug ineffective [Unknown]
  - Haematuria [Unknown]
  - Post procedural haemorrhage [Unknown]
  - Vascular pseudoaneurysm [Unknown]
  - Ureteric obstruction [Unknown]
